FAERS Safety Report 9738456 (Version 2)
Quarter: 2013Q4

REPORT INFORMATION
  Report Type: Spontaneous
  Country: FR (occurrence: FR)
  Receive Date: 20131208
  Receipt Date: 20131208
  Transmission Date: 20140711
  Serious: Yes (Disabling)
  Sender: FDA-Public Use
  Company Number: FR-ROCHE-1296274

PATIENT
  Age: 70 Year
  Sex: Female
  Weight: 90 kg

DRUGS (8)
  1. HERCEPTIN [Suspect]
     Indication: BREAST CANCER METASTATIC
     Route: 042
     Dates: start: 20130516, end: 20130808
  2. TAXOTERE [Suspect]
     Indication: BREAST CANCER METASTATIC
     Route: 042
     Dates: start: 20130516, end: 20130808
  3. METHYLPREDNISOLONE [Suspect]
     Indication: PRODUCT USED FOR UNKNOWN INDICATION
     Route: 042
     Dates: start: 20130516, end: 20130808
  4. ZYLORIC [Concomitant]
     Dosage: 300 MG
     Route: 065
  5. AMLOR [Concomitant]
     Dosage: 10 MG
     Route: 065
  6. RENITEC [Concomitant]
     Dosage: 20 MG
     Route: 065
  7. INEXIUM [Concomitant]
     Dosage: 20 MG
     Route: 065
  8. INNOHEP [Concomitant]
     Dosage: 0.7 ML
     Route: 058

REACTIONS (3)
  - Confusional state [Recovered/Resolved]
  - Disorientation [Recovered/Resolved]
  - Agitation [Recovered/Resolved]
